FAERS Safety Report 8886629 (Version 1)
Quarter: 2012Q4

REPORT INFORMATION
  Report Type: 
  Country: GB (occurrence: GB)
  Receive Date: 20121105
  Receipt Date: 20121105
  Transmission Date: 20130627
  Serious: Yes (Hospitalization)
  Sender: FDA-Public Use
  Company Number: PHFR2012GB003454

PATIENT
  Age: 75 Year
  Sex: Male

DRUGS (9)
  1. TASIGNA [Suspect]
     Indication: CHRONIC MYELOID LEUKAEMIA
     Dosage: 800 mg, daily
     Route: 048
     Dates: start: 200910, end: 201205
  2. AZITHROMYCIN [Concomitant]
     Dosage: 250 mg, daily
     Route: 048
  3. CITALOPRAM [Concomitant]
     Dosage: 20 mg, daily
     Route: 048
  4. FERROUS SULPHATE [Concomitant]
     Indication: IRON DEFICIENCY
     Dosage: 200 mg, daily
  5. GABAPENTIN [Concomitant]
     Dosage: 1.8 g, QD
     Route: 048
  6. GLICLAZIDE [Concomitant]
     Dosage: 40 mg, QD
     Route: 048
  7. METFORMIN [Concomitant]
     Dosage: 1700 mg, QD
     Route: 048
  8. OMEPRAZOLE [Concomitant]
     Dosage: 20 mg, QD
     Route: 048
  9. HYDROCORTISONE [Concomitant]
     Dosage: 20 mg Am  10 mg Pm
     Route: 048

REACTIONS (4)
  - Pancreatitis [Recovered/Resolved]
  - Abdominal pain upper [Recovered/Resolved]
  - Jaundice [Recovered/Resolved]
  - Cholelithiasis [Unknown]
